FAERS Safety Report 5196631-4 (Version None)
Quarter: 2006Q4

REPORT INFORMATION
  Report Type: 
  Country: None (occurrence: None)
  Receive Date: 20061227
  Receipt Date: 20061214
  Transmission Date: 20070319
  Serious: Yes (Hospitalization)
  Sender: FDA-Public Use
  Company Number: 2006300188

PATIENT
  Age: 21 Month
  Sex: Male
  Weight: 11.3 kg

DRUGS (4)
  1. BENADRYL [Suspect]
     Indication: URTICARIA
     Dosage: 1/8 - 1/4 TSP AS NEEDED (AS NECESSARY), ORAL
     Route: 048
     Dates: start: 20061204, end: 20061208
  2. BENADRYL [Suspect]
     Indication: URTICARIA
     Dosage: INTRAVENOUS
     Route: 042
     Dates: start: 20061206, end: 20061208
  3. TYLENOL [Suspect]
     Indication: URTICARIA
     Dosage: ORAL
     Route: 048
     Dates: start: 20061205, end: 20061206
  4. CORTICOSTEROID NOS (CORTICOSTEROID NOS) [Suspect]
     Indication: URTICARIA
     Dates: start: 20061206

REACTIONS (5)
  - DYSPHONIA [None]
  - EYE SWELLING [None]
  - INFLUENZA LIKE ILLNESS [None]
  - PNEUMONIA [None]
  - URTICARIA [None]
